FAERS Safety Report 24166782 (Version 2)
Quarter: 2025Q4

REPORT INFORMATION
  Report Type: Report from Study
  Country: ZA (occurrence: ZA)
  Receive Date: 20240802
  Receipt Date: 20251024
  Transmission Date: 20260119
  Serious: Yes (Hospitalization, Other)
  Sender: CELLTRION
  Company Number: ZA-ADCOCK INGRAM-2024ZA011008

PATIENT

DRUGS (1)
  1. INFLIXIMAB-DYYB [Suspect]
     Active Substance: INFLIXIMAB-DYYB
     Indication: Rheumatoid arthritis
     Dosage: 400MG INTRAVENOUS INFUSION AT WEEK 0, WEEK 2 THEN 6 WEEK INTERVAL
     Route: 042
     Dates: start: 20240425, end: 20240509

REACTIONS (11)
  - Osteoarthritis [Unknown]
  - Knee operation [Recovering/Resolving]
  - Osteomyelitis [Recovering/Resolving]
  - Intentional dose omission [Unknown]
  - Malaise [Recovering/Resolving]
  - Weight increased [Unknown]
  - Fatigue [Recovered/Resolved]
  - Headache [Recovered/Resolved]
  - Nausea [Recovered/Resolved]
  - Intentional dose omission [Recovering/Resolving]
  - Drug ineffective [Unknown]

NARRATIVE: CASE EVENT DATE: 20240509
